FAERS Safety Report 8131047-X (Version None)
Quarter: 2012Q1

REPORT INFORMATION
  Report Type: 
  Country: None (occurrence: None)
  Receive Date: 20120213
  Receipt Date: 20120201
  Transmission Date: 20120608
  Serious: Yes (Hospitalization)
  Sender: FDA-Public Use
  Company Number: SE-AMGEN-SWECT2012008079

PATIENT
  Age: 68 Year
  Sex: Female

DRUGS (8)
  1. FOLIC ACID [Concomitant]
     Dosage: UNK
     Route: 048
  2. OPTINATE SEPTIMUM [Concomitant]
     Dosage: UNK
  3. ETANERCEPT [Suspect]
     Indication: RHEUMATOID ARTHRITIS
     Dosage: 50 MG, QWK
     Route: 058
     Dates: start: 20080211, end: 20081111
  4. METHOTREXATE [Concomitant]
     Dosage: UNK
     Route: 065
  5. KALCIPOS-D [Concomitant]
     Dosage: UNK
     Route: 065
  6. PREDNISOLONE [Concomitant]
     Dosage: UNK
     Route: 065
  7. REMICADE [Suspect]
     Indication: RHEUMATOID ARTHRITIS
     Dosage: 200 MG, 1X/PM
     Route: 042
     Dates: start: 20061003, end: 20080211
  8. NAPROXEN [Concomitant]
     Dosage: UNK
     Route: 065

REACTIONS (1)
  - METASTATIC UTERINE CANCER [None]
